FAERS Safety Report 8250170-2 (Version None)
Quarter: 2012Q1

REPORT INFORMATION
  Report Type: 
  Country: None (occurrence: None)
  Receive Date: 20120328
  Receipt Date: 20120313
  Transmission Date: 20120608
  Serious: Yes (Death)
  Sender: FDA-Public Use
  Company Number: B0788680A

PATIENT
  Age: 32 Year
  Sex: Female

DRUGS (3)
  1. CEFTAZIDIME SODIUM [Suspect]
     Indication: SEPSIS
  2. AMPICILLIN AND SULBACTAM [Suspect]
     Indication: SEPSIS
  3. AMOXICILLIN/CLAVULANATE POTASSIUM [Suspect]
     Indication: SEPSIS

REACTIONS (1)
  - STATUS EPILEPTICUS [None]
